FAERS Safety Report 7689177-2 (Version None)
Quarter: 2011Q3

REPORT INFORMATION
  Report Type: 
  Country: None (occurrence: None)
  Receive Date: 20110817
  Receipt Date: 20110811
  Transmission Date: 20111222
  Serious: Yes (Hospitalization)
  Sender: FDA-Public Use
  Company Number: JP-B.I. PHARMACEUTICALS,INC./RIDGEFIELD-2011-BP-19638NB

PATIENT
  Age: 90 Year
  Sex: Female
  Weight: 41.8 kg

DRUGS (7)
  1. DIGOXIN [Concomitant]
     Indication: ATRIAL FIBRILLATION
     Dosage: 0.08 G
     Route: 048
  2. VERAPAMIL HCL [Concomitant]
     Indication: CARDIAC FAILURE
     Dosage: 40 MG
     Route: 048
  3. ENALAPRIL MALEATE [Concomitant]
     Indication: CARDIAC FAILURE
     Dosage: 0.5 MG
     Route: 048
     Dates: end: 20110728
  4. LASIX [Concomitant]
     Indication: ATRIAL FIBRILLATION
     Dosage: 20 MG
     Route: 048
     Dates: end: 20110728
  5. RABEPRAZOLE SODIUM [Concomitant]
     Dosage: 10 MG
     Route: 065
  6. ALDACTONE [Concomitant]
     Indication: CARDIAC FAILURE
     Dosage: 25 MG
     Route: 048
     Dates: end: 20110728
  7. PRADAXA [Suspect]
     Indication: ATRIAL FIBRILLATION
     Dosage: 220 MG
     Route: 048
     Dates: start: 20110515, end: 20110802

REACTIONS (4)
  - URINARY TRACT INFECTION [None]
  - DEHYDRATION [None]
  - RENAL FAILURE ACUTE [None]
  - HAEMATURIA [None]
